FAERS Safety Report 5334859-0 (Version None)
Quarter: 2007Q2

REPORT INFORMATION
  Report Type: 
  Country: None (occurrence: None)
  Receive Date: 20070525
  Receipt Date: 20070521
  Transmission Date: 20071010
  Serious: Yes (Other)
  Sender: FDA-Public Use
  Company Number: GB-MERCK-0705GBR00083

PATIENT
  Age: 71 Year
  Sex: Male
  Weight: 105 kg

DRUGS (6)
  1. FOSAMAX [Suspect]
     Indication: OSTEOPOROSIS
     Route: 048
     Dates: start: 20060403, end: 20060930
  2. GLICLAZIDE [Concomitant]
     Indication: DIABETES MELLITUS NON-INSULIN-DEPENDENT
     Route: 048
  3. METFORMIN [Concomitant]
     Indication: DIABETES MELLITUS NON-INSULIN-DEPENDENT
     Route: 048
  4. PAROXETINE [Concomitant]
     Indication: ANXIETY
     Route: 048
  5. PAROXETINE [Concomitant]
     Indication: DEPRESSION
     Route: 048
  6. WARFARIN [Concomitant]
     Indication: AORTIC VALVE REPLACEMENT
     Route: 048

REACTIONS (2)
  - ANGER [None]
  - IRRITABILITY [None]
